FAERS Safety Report 4279959-1 (Version None)
Quarter: 2004Q1

REPORT INFORMATION
  Report Type: 
  Country: None (occurrence: None)
  Receive Date: 20040121
  Receipt Date: 20040115
  Transmission Date: 20041129
  Serious: Yes (Hospitalization, Other)
  Sender: FDA-Public Use
  Company Number: WAES 0311USA01119

PATIENT
  Age: 62 Year
  Sex: Female

DRUGS (3)
  1. ZOCOR [Suspect]
     Indication: HYPERLIPIDAEMIA
     Dosage: 5 MG/DAILY; ORAL
     Route: 048
     Dates: start: 19930325
  2. CANDESARTAN CILEXETIL [Concomitant]
  3. CILOSTAZOL [Concomitant]

REACTIONS (3)
  - CEREBRAL INFARCTION [None]
  - HYPOAESTHESIA [None]
  - SWELLING FACE [None]
